FAERS Safety Report 21727419 (Version 1)
Quarter: 2022Q4

REPORT INFORMATION
  Report Type: Report from Study
  Country: US (occurrence: US)
  Receive Date: 20221214
  Receipt Date: 20221214
  Transmission Date: 20230113
  Serious: No
  Sender: FDA-Public Use
  Company Number: US-002147023-NVSC2022US287200

PATIENT

DRUGS (1)
  1. GLATIRAMER ACETATE [Suspect]
     Active Substance: GLATIRAMER ACETATE
     Indication: Product used for unknown indication
     Dosage: UNK
     Route: 065

REACTIONS (8)
  - Depression [Unknown]
  - Discomfort [Unknown]
  - Gait disturbance [Unknown]
  - General physical health deterioration [Unknown]
  - Pain [Unknown]
  - Anxiety [Unknown]
  - Injection site reaction [Unknown]
  - Drug ineffective [Unknown]
